FAERS Safety Report 10263596 (Version 1)
Quarter: 2014Q2

REPORT INFORMATION
  Report Type: Report from Study
  Country: DE (occurrence: DE)
  Receive Date: 20140626
  Receipt Date: 20140626
  Transmission Date: 20141212
  Serious: No
  Sender: FDA-Public Use
  Company Number: PHHY2014DE079056

PATIENT
  Sex: Male
  Weight: 67 kg

DRUGS (7)
  1. AMN107 [Suspect]
     Indication: CHRONIC MYELOID LEUKAEMIA
     Dosage: 400 MG, PERDAY
     Route: 048
     Dates: start: 20130404
  2. AMN107 [Suspect]
     Dosage: 400 MG, PERDAY
     Route: 048
     Dates: start: 20130618
  3. AMN107 [Suspect]
     Dosage: 600 MG, PERDAY
     Route: 048
     Dates: start: 20130716, end: 20140320
  4. AMN107 [Suspect]
     Dosage: 400 MG, PERDAY
     Route: 048
     Dates: start: 20140514
  5. ASS [Concomitant]
     Dosage: 100 MG, UNK
  6. BISOPROLOL [Concomitant]
  7. SIMVASTATIN [Concomitant]

REACTIONS (1)
  - Night sweats [Recovered/Resolved]
